FAERS Safety Report 21221295 (Version 1)
Quarter: 2022Q3

REPORT INFORMATION
  Report Type: Spontaneous
  Country: US (occurrence: US)
  Receive Date: 20220817
  Receipt Date: 20220817
  Transmission Date: 20221026
  Serious: No
  Sender: FDA-Public Use
  Company Number: US-SA-SAC20220811001860

PATIENT
  Sex: Male

DRUGS (8)
  1. DUPIXENT [Suspect]
     Active Substance: DUPILUMAB
     Indication: Dermatitis atopic
     Dosage: 300 MG, QOW
     Route: 058
     Dates: start: 20210621
  2. ADBRY [Concomitant]
     Active Substance: TRALOKINUMAB-LDRM
  3. TYLENOL [Concomitant]
     Active Substance: ACETAMINOPHEN
  4. TRIAMCINOLONE ACETONIDE [Concomitant]
     Active Substance: TRIAMCINOLONE ACETONIDE
  5. CLOBETASOL [Concomitant]
     Active Substance: CLOBETASOL
  6. OMEPRAZOLE [Concomitant]
     Active Substance: OMEPRAZOLE
  7. METFORMIN HYDROCHLORIDE [Concomitant]
     Active Substance: METFORMIN HYDROCHLORIDE
  8. EUCRISA [Concomitant]
     Active Substance: CRISABOROLE

REACTIONS (1)
  - Rash pruritic [Unknown]
